FAERS Safety Report 13517232 (Version 1)
Quarter: 2017Q2

REPORT INFORMATION
  Report Type: Spontaneous
  Country: US (occurrence: US)
  Receive Date: 20170504
  Receipt Date: 20170504
  Transmission Date: 20170830
  Serious: Yes (Disabling)
  Sender: FDA-Public Use
  Company Number: None

PATIENT
  Age: 37 Year
  Sex: Female
  Weight: 76.05 kg

DRUGS (5)
  1. SERTRALINE [Concomitant]
     Active Substance: SERTRALINE HYDROCHLORIDE
  2. PRISTIQ EXTENDED-RELEASE [Concomitant]
     Active Substance: DESVENLAFAXINE SUCCINATE
  3. DIAZEPAM. [Concomitant]
     Active Substance: DIAZEPAM
  4. GNC WOMENS MULTI VITAMIN [Concomitant]
  5. DESVENLAFAXINE SUUCCINATE 50 MG [Suspect]
     Active Substance: DESVENLAFAXINE SUCCINATE
     Indication: DEPRESSION
     Dosage: ?          QUANTITY:1 TABLET(S);?
     Route: 048
     Dates: start: 20170406, end: 20170503

REACTIONS (4)
  - Disease recurrence [None]
  - Product substitution issue [None]
  - Depression [None]
  - Bruxism [None]

NARRATIVE: CASE EVENT DATE: 20170425
